FAERS Safety Report 8025279-9 (Version None)
Quarter: 2012Q1

REPORT INFORMATION
  Report Type: 
  Country: None (occurrence: None)
  Receive Date: 20120105
  Receipt Date: 20111227
  Transmission Date: 20120608
  Serious: Yes (Death)
  Sender: FDA-Public Use
  Company Number: US-JNJFOC-20111212520

PATIENT
  Age: 19 Year
  Sex: Female

DRUGS (9)
  1. DIPHENHYDRAMINE HCL [Suspect]
     Indication: SUICIDE ATTEMPT
  2. DIAZEPAM [Suspect]
     Indication: SUICIDE ATTEMPT
  3. DIPHENHYDRAMINE HCL [Suspect]
  4. ATENOLOL [Suspect]
     Indication: SUICIDE ATTEMPT
  5. HYDROXYZINE [Suspect]
     Indication: SUICIDE ATTEMPT
  6. AMLODIPINE [Suspect]
     Indication: SUICIDE ATTEMPT
  7. ACETAMINOPHEN AND HYDROCODONE BITARTRATE [Suspect]
     Indication: SUICIDE ATTEMPT
  8. SALICYLATES NOS [Suspect]
     Indication: SUICIDE ATTEMPT
  9. DYAZIDE [Suspect]
     Indication: SUICIDE ATTEMPT

REACTIONS (2)
  - CARDIO-RESPIRATORY ARREST [None]
  - TOXICITY TO VARIOUS AGENTS [None]
